FAERS Safety Report 5808635-6 (Version None)
Quarter: 2008Q3

REPORT INFORMATION
  Report Type: 
  Country: None (occurrence: None)
  Receive Date: 20080709
  Receipt Date: 20080709
  Transmission Date: 20090109
  Serious: Yes (Hospitalization)
  Sender: FDA-Public Use
  Company Number: None

PATIENT
  Age: 61 Year
  Sex: Male

DRUGS (2)
  1. BUMETANIDE [Suspect]
     Indication: CARDIAC FAILURE CONGESTIVE
     Dosage: 0.5 MG PRN IV
     Route: 042
     Dates: start: 20080506, end: 20080507
  2. FUROSEMIDE [Suspect]
     Indication: CARDIAC FAILURE CONGESTIVE
     Dosage: 20 MG ONCE IV
     Route: 042
     Dates: start: 20080506, end: 20080506

REACTIONS (3)
  - BRADYCARDIA [None]
  - DEHYDRATION [None]
  - RENAL FAILURE ACUTE [None]
